FAERS Safety Report 11491940 (Version 1)
Quarter: 2015Q3

REPORT INFORMATION
  Report Type: Spontaneous
  Country: US (occurrence: US)
  Receive Date: 20150910
  Receipt Date: 20150910
  Transmission Date: 20151125
  Serious: No
  Sender: FDA-Public Use
  Company Number: US-BAYER-2015-417661

PATIENT
  Age: 6 Year
  Sex: Male
  Weight: 22.22 kg

DRUGS (2)
  1. CHILDREN CLARITIN ALLERGY [Suspect]
     Active Substance: LORATADINE
     Indication: COUGH
     Dosage: 3 DF, UNK
  2. CHILDREN CLARITIN ALLERGY [Suspect]
     Active Substance: LORATADINE
     Indication: COUGH
     Dosage: UNK

REACTIONS (2)
  - Off label use [None]
  - Product use issue [None]
